FAERS Safety Report 4781646-8 (Version None)
Quarter: 2005Q3

REPORT INFORMATION
  Report Type: 
  Country: None (occurrence: None)
  Receive Date: 20050927
  Receipt Date: 20050913
  Transmission Date: 20060218
  Serious: Yes (Hospitalization)
  Sender: FDA-Public Use
  Company Number: 2005_000051

PATIENT
  Age: 56 Year
  Sex: Female
  Weight: 51 kg

DRUGS (4)
  1. DEPOCYT [Suspect]
     Indication: MANTLE CELL LYMPHOMA
     Dosage: 50 MG; X1; INTRATHECAL
     Route: 037
     Dates: start: 20050413, end: 20050413
  2. CYTARABINE [Suspect]
  3. METHOTREXATE [Concomitant]
  4. CORTISONE ACETATE TAB [Concomitant]

REACTIONS (1)
  - SCHIZOPHRENIA, PARANOID TYPE [None]
